FAERS Safety Report 15797417 (Version 2)
Quarter: 2019Q2

REPORT INFORMATION
  Report Type: Spontaneous
  Country: CN (occurrence: CN)
  Receive Date: 20190108
  Receipt Date: 20190520
  Transmission Date: 20190711
  Serious: Yes (Hospitalization, Other)
  Sender: FDA-Public Use
  Company Number: CN-ELI_LILLY_AND_COMPANY-CN201901000706

PATIENT
  Age: 69 Year
  Sex: Female
  Weight: 61 kg

DRUGS (9)
  1. HUMULIN 70/30 [Suspect]
     Active Substance: INSULIN HUMAN
     Indication: TYPE 2 DIABETES MELLITUS
     Dosage: 20 IU, EACH MORNING
     Route: 058
     Dates: start: 2007
  2. HUMULIN 70/30 [Suspect]
     Active Substance: INSULIN HUMAN
     Dosage: 18 IU, NIGHT
     Route: 058
     Dates: start: 2007
  3. HUMALOG [Suspect]
     Active Substance: INSULIN LISPRO
     Indication: TYPE 2 DIABETES MELLITUS
     Dosage: 10 INTERNATIONAL UNIT, EACH MORNING
     Route: 058
     Dates: start: 201812
  4. HUMULIN 70/30 [Suspect]
     Active Substance: INSULIN HUMAN
     Dosage: 24 IU, EACH MORNING
     Route: 058
     Dates: end: 2017
  5. HUMULIN 70/30 [Suspect]
     Active Substance: INSULIN HUMAN
     Dosage: 22 IU, NIGHT
     Route: 058
     Dates: end: 2017
  6. HUMALOG MIX75/25 [Suspect]
     Active Substance: INSULIN LISPRO
     Indication: TYPE 2 DIABETES MELLITUS
     Dosage: 20 INTERNATIONAL UNIT, BID
     Route: 058
     Dates: start: 2017, end: 201812
  7. HUMALOG [Suspect]
     Active Substance: INSULIN LISPRO
     Dosage: 8 INTERNATIONAL UNIT, EACH EVENING
     Route: 058
     Dates: start: 201812
  8. HUMALOG [Suspect]
     Active Substance: INSULIN LISPRO
     Dosage: 6 INTERNATIONAL UNIT, DAILY(NOON)
     Route: 058
     Dates: start: 201812
  9. INSULIN GLARGINE [Concomitant]
     Active Substance: INSULIN GLARGINE
     Indication: TYPE 2 DIABETES MELLITUS
     Dosage: 20 INTERNATIONAL UNIT, DAILY
     Route: 058

REACTIONS (5)
  - Protein urine [Unknown]
  - Blood glucose increased [Unknown]
  - Retinal detachment [Unknown]
  - Blood glucose abnormal [Unknown]
  - Visual impairment [Unknown]

NARRATIVE: CASE EVENT DATE: 2012
